FAERS Safety Report 4358631-3 (Version None)
Quarter: 2004Q2

REPORT INFORMATION
  Report Type: 
  Country: None (occurrence: None)
  Receive Date: 20040514
  Receipt Date: 20040514
  Transmission Date: 20050107
  Serious: No
  Sender: FDA-Public Use
  Company Number: None

PATIENT
  Sex: Male
  Weight: 62.5964 kg

DRUGS (3)
  1. ETOPOSIDE [Suspect]
     Indication: SMALL CELL LUNG CANCER STAGE UNSPECIFIED
     Dosage: 150 DAILY X 3 INTRAVENOUS
     Route: 042
     Dates: start: 20040414, end: 20040416
  2. MANNITOL [Concomitant]
  3. CISPLATIN [Suspect]
     Indication: SMALL CELL LUNG CANCER STAGE UNSPECIFIED
     Dosage: 141.6 APRIL 14 IV
     Dates: start: 20040414, end: 20040414

REACTIONS (1)
  - BLOOD URIC ACID INCREASED [None]
